FAERS Safety Report 12898510 (Version 1)
Quarter: 2016Q4

REPORT INFORMATION
  Report Type: Report from Study
  Country: US (occurrence: US)
  Receive Date: 20161031
  Receipt Date: 20161031
  Transmission Date: 20170207
  Serious: No
  Sender: FDA-Public Use
  Company Number: US-AMGEN-USASL2016142150

PATIENT
  Age: 60 Year
  Sex: Male

DRUGS (1)
  1. ENBREL [Suspect]
     Active Substance: ETANERCEPT
     Indication: ANKYLOSING SPONDYLITIS
     Dosage: 50 MG, QWK
     Route: 065

REACTIONS (9)
  - Arthralgia [Unknown]
  - Joint stiffness [Unknown]
  - Cough [Not Recovered/Not Resolved]
  - Musculoskeletal stiffness [Unknown]
  - Upper respiratory tract infection [Unknown]
  - Injection site pain [Unknown]
  - Dyspnoea [Unknown]
  - Rhinorrhoea [Unknown]
  - Pain [Unknown]

NARRATIVE: CASE EVENT DATE: 20161009
